FAERS Safety Report 5808929-4 (Version None)
Quarter: 2008Q3

REPORT INFORMATION
  Report Type: 
  Country: None (occurrence: None)
  Receive Date: 20080710
  Receipt Date: 20080710
  Transmission Date: 20090109
  Serious: Yes (Life-Threatening, Hospitalization)
  Sender: FDA-Public Use
  Company Number: None

PATIENT
  Sex: Female
  Weight: 87.9978 kg

DRUGS (1)
  1. LEVAQUIN [Suspect]
     Indication: SINUSITIS

REACTIONS (14)
  - ARTHRALGIA [None]
  - BURNING SENSATION [None]
  - ECONOMIC PROBLEM [None]
  - FALL [None]
  - FEELING ABNORMAL [None]
  - MYALGIA [None]
  - NAIL DISCOLOURATION [None]
  - PRURITUS [None]
  - RESPIRATORY RATE DECREASED [None]
  - SKIN DISCOLOURATION [None]
  - SWELLING [None]
  - URTICARIA [None]
  - VOMITING [None]
  - WEIGHT INCREASED [None]
